FAERS Safety Report 9760200 (Version 2)
Quarter: 2014Q3

REPORT INFORMATION
  Report Type: Spontaneous
  Country: US (occurrence: US)
  Receive Date: 20131216
  Receipt Date: 20140710
  Transmission Date: 20150326
  Serious: No
  Sender: FDA-Public Use
  Company Number: US-BAYER-2013-151198

PATIENT
  Age: 65 Year
  Sex: Female
  Weight: 48 kg

DRUGS (3)
  1. RESTASIS [Concomitant]
     Active Substance: CYCLOSPORINE
     Indication: DRY EYE
     Dosage: UNK UNK, BID
     Route: 047
     Dates: start: 2010
  2. CLIMARA [Suspect]
     Active Substance: ESTRADIOL
     Indication: MENOPAUSE
     Dosage: UNK
     Route: 062
     Dates: start: 201203
  3. CLIMARA [Suspect]
     Active Substance: ESTRADIOL
     Indication: MENOPAUSE
     Dosage: UNK, OW
     Route: 062
     Dates: start: 2013, end: 20140703

REACTIONS (4)
  - Product adhesion issue [None]
  - Application site rash [Recovering/Resolving]
  - Blister [None]
  - Blister [Recovering/Resolving]

NARRATIVE: CASE EVENT DATE: 2013
